FAERS Safety Report 12994534 (Version 2)
Quarter: 2016Q4

REPORT INFORMATION
  Report Type: Spontaneous
  Country: FR (occurrence: FR)
  Receive Date: 20161202
  Receipt Date: 20161229
  Transmission Date: 20170207
  Serious: Yes (Death, Other)
  Sender: FDA-Public Use
  Company Number: FR-EMCURE PHARMS-2016HTG00288

PATIENT
  Age: 63 Year
  Sex: Male

DRUGS (24)
  1. BICNU [Suspect]
     Active Substance: CARMUSTINE
     Indication: TRANSPLANT
     Dosage: 579 MG, ONCE
     Route: 042
     Dates: start: 20161104, end: 20161104
  2. WELLVONE [Concomitant]
     Active Substance: ATOVAQUONE
     Dosage: 5 ML, 2X/DAY
  3. EG LABO [Concomitant]
     Dosage: 1200 MG, UNK
     Route: 042
     Dates: start: 20161105, end: 20161109
  4. EMEND [Concomitant]
     Active Substance: APREPITANT
     Dosage: 80 MG, UNK
     Dates: start: 20161108, end: 20161108
  5. SMECTA [Concomitant]
     Active Substance: MONTMORILLONITE
     Dosage: UNK
     Dates: start: 20161107, end: 20161108
  6. AXEPIM [Concomitant]
     Active Substance: CEFEPIME HYDROCHLORIDE
     Dosage: 2 G, UNK
     Dates: start: 20161108, end: 20161108
  7. ZOPHREN [Concomitant]
     Active Substance: ONDANSETRON
     Dosage: 8 MG, UNK
     Dates: start: 20161104, end: 20161108
  8. TIORFAN [Concomitant]
     Active Substance: RACECADOTRIL
     Dosage: UNK
     Dates: start: 20161107, end: 20161108
  9. AMIKLIN [Concomitant]
     Active Substance: AMIKACIN SULFATE
     Dosage: 1500 MG, UNK
     Dates: start: 20161108, end: 20161108
  10. CYTARABINE KABI [Suspect]
     Active Substance: CYTARABINE
     Indication: TRANSPLANT
     Dosage: 772 MG EQUIVALENT TO 3088 MG IN TOTAL
     Route: 042
     Dates: start: 20161105, end: 20161108
  11. ETOPOPHOS [Suspect]
     Active Substance: ETOPOSIDE PHOSPHATE
     Indication: TRANSPLANT
     Dosage: 386 MG EQUIVALENT TO 772 MG IN TOTAL
     Route: 042
     Dates: start: 20161105, end: 20161106
  12. KARDEGIC [Concomitant]
     Active Substance: ASPIRIN LYSINE
     Dosage: 75 MG, 1X/DAY
  13. ZELITREX [Concomitant]
     Active Substance: VALACYCLOVIR HYDROCHLORIDE
     Dosage: 500 MG, 2X/DAY
  14. EMEND [Concomitant]
     Active Substance: APREPITANT
     Dosage: 125 MG, UNK
     Dates: start: 20161107, end: 20161107
  15. PRIMPERAN [Concomitant]
     Active Substance: METOCLOPRAMIDE HYDROCHLORIDE
     Dosage: 10 MG, UNK
     Dates: start: 20161107, end: 20161108
  16. ROVAMYCINE [Concomitant]
     Active Substance: SPIRAMYCIN
     Dosage: 1.5 MU
     Dates: start: 20161108, end: 20161108
  17. ETOPOSIDE MYLAN [Suspect]
     Active Substance: ETOPOSIDE
     Indication: TRANSPLANT
     Dosage: 386 MG EQUIVALENT TO 772 MG IN TOTAL
     Route: 042
     Dates: start: 20161107, end: 20161108
  18. ENDOXAN [Suspect]
     Active Substance: CYCLOPHOSPHAMIDE
     Indication: TRANSPLANT
     Dosage: 2895 G, 1X/DAY
     Route: 042
     Dates: start: 20161105, end: 20161108
  19. ATENOLOL. [Concomitant]
     Active Substance: ATENOLOL
     Dosage: 100 MG, 1X/DAY
  20. PRAVASTATIN. [Concomitant]
     Active Substance: PRAVASTATIN
     Dosage: 20 MG, 1X/DAY
  21. SOLU-MEDROL [Concomitant]
     Active Substance: METHYLPREDNISOLONE SODIUM SUCCINATE
     Dosage: 40 MG, UNK
     Dates: start: 20161105, end: 20161108
  22. LASILIX [Concomitant]
     Active Substance: FUROSEMIDE
     Dosage: 60 MG, UNK
     Dates: start: 20161108, end: 20161108
  23. LASILIX [Concomitant]
     Active Substance: FUROSEMIDE
     Dosage: 20+80 MG
     Dates: start: 20161109, end: 20161109
  24. AMLOR [Concomitant]
     Active Substance: AMLODIPINE BESYLATE
     Dosage: 5 UNK, 1X/DAY

REACTIONS (5)
  - Cardiotoxicity [Fatal]
  - Pulmonary toxicity [Fatal]
  - Cardio-respiratory arrest [None]
  - Diarrhoea haemorrhagic [Unknown]
  - Anuria [Unknown]

NARRATIVE: CASE EVENT DATE: 201611
